FAERS Safety Report 5401411-8 (Version None)
Quarter: 2007Q3

REPORT INFORMATION
  Report Type: 
  Country: None (occurrence: None)
  Receive Date: 20070726
  Receipt Date: 20070717
  Transmission Date: 20080115
  Serious: Yes (Life-Threatening)
  Sender: FDA-Public Use
  Company Number: 2007AL002877

PATIENT
  Age: 57 Year
  Sex: Female

DRUGS (13)
  1. ACYCLOVIR [Suspect]
     Indication: DRUG USE FOR UNKNOWN INDICATION
     Dosage: 200 MG;QD;
     Dates: start: 20070322, end: 20070329
  2. ACYCLOVIR [Concomitant]
  3. PREDNISOLONE [Concomitant]
  4. CYCLOSPORINE [Concomitant]
  5. VANCOMYCIN [Concomitant]
  6. VALPROIC ACID [Concomitant]
  7. PREDNISCLONE [Concomitant]
  8. CALCIUM ACETATE [Concomitant]
  9. ACETAMINOPHEN [Concomitant]
  10. BISOPROLOL FUMARATE [Concomitant]
  11. OMEPRAZOLE [Concomitant]
  12. TITRALAC [Concomitant]
  13. CALCICHEW [Concomitant]

REACTIONS (2)
  - RENAL FAILURE CHRONIC [None]
  - TRANSPLANT REJECTION [None]
